FAERS Safety Report 23499419 (Version 6)
Quarter: 2024Q2

REPORT INFORMATION
  Report Type: Report from Study
  Country: US (occurrence: US)
  Receive Date: 20240208
  Receipt Date: 20240530
  Transmission Date: 20240716
  Serious: Yes (Other)
  Sender: FDA-Public Use
  Company Number: US-SA-2024SA035558

PATIENT
  Age: 74 Year
  Sex: Female

DRUGS (4)
  1. DRONEDARONE [Suspect]
     Active Substance: DRONEDARONE
     Indication: Atrial fibrillation
     Dosage: 0.5 DF, BID
     Route: 048
  2. AZITHROMYCIN [Concomitant]
     Active Substance: AZITHROMYCIN
     Dosage: UNK
  3. ELIQUIS [Concomitant]
     Active Substance: APIXABAN
     Dosage: UNK
  4. PREDNISOLONE [Concomitant]
     Active Substance: PREDNISOLONE
     Dosage: UNK

REACTIONS (16)
  - Arrhythmia [Unknown]
  - Atrial fibrillation [Unknown]
  - Cataract [Unknown]
  - Fungal infection [Unknown]
  - Tachycardia [Unknown]
  - Sleep disorder [Unknown]
  - Heart rate increased [Unknown]
  - Stress [Unknown]
  - Blood pressure increased [Unknown]
  - Supraventricular tachycardia [Unknown]
  - Dyspepsia [Unknown]
  - Pruritus [Unknown]
  - Rash [Unknown]
  - Product prescribing issue [Unknown]
  - Product use issue [Unknown]
  - Therapeutic response decreased [Unknown]

NARRATIVE: CASE EVENT DATE: 20240219
